FAERS Safety Report 13975261 (Version 14)
Quarter: 2019Q1

REPORT INFORMATION
  Report Type: Report from Study
  Country: None (occurrence: US)
  Receive Date: 20170915
  Receipt Date: 20190326
  Transmission Date: 20190417
  Serious: Yes (Other)
  Sender: FDA-Public Use
  Company Number: US-ABBVIE-17K-163-2056080-00

PATIENT
  Age: 73 Year
  Sex: Female

DRUGS (2)
  1. HUMIRA [Suspect]
     Active Substance: ADALIMUMAB
     Route: 058
  2. HUMIRA [Suspect]
     Active Substance: ADALIMUMAB
     Indication: CROHN^S DISEASE
     Route: 058
     Dates: start: 2017

REACTIONS (66)
  - Oral mucosal blistering [Not Recovered/Not Resolved]
  - Joint swelling [Unknown]
  - Faeces discoloured [Not Recovered/Not Resolved]
  - Blood iron decreased [Not Recovered/Not Resolved]
  - Oral pruritus [Not Recovered/Not Resolved]
  - Skin burning sensation [Not Recovered/Not Resolved]
  - Blister [Not Recovered/Not Resolved]
  - Angular cheilitis [Not Recovered/Not Resolved]
  - Arthralgia [Recovering/Resolving]
  - Back pain [Recovering/Resolving]
  - Intestinal mass [Unknown]
  - Rectal discharge [Not Recovered/Not Resolved]
  - Muscular weakness [Not Recovered/Not Resolved]
  - Dry skin [Unknown]
  - Lip pruritus [Not Recovered/Not Resolved]
  - Depression [Unknown]
  - Anaemia [Not Recovered/Not Resolved]
  - Hypoaesthesia [Unknown]
  - Neuralgia [Unknown]
  - Arthralgia [Not Recovered/Not Resolved]
  - Rash pruritic [Not Recovered/Not Resolved]
  - Lacrimation increased [Not Recovered/Not Resolved]
  - Weight decreased [Not Recovered/Not Resolved]
  - Eye irritation [Unknown]
  - Dry eye [Unknown]
  - Peripheral swelling [Recovering/Resolving]
  - Diarrhoea [Not Recovered/Not Resolved]
  - Eye pain [Unknown]
  - Pain in extremity [Recovering/Resolving]
  - Post procedural diarrhoea [Not Recovered/Not Resolved]
  - Gait inability [Unknown]
  - Mastication disorder [Not Recovered/Not Resolved]
  - Fatigue [Not Recovered/Not Resolved]
  - Dry mouth [Not Recovered/Not Resolved]
  - Cough [Not Recovered/Not Resolved]
  - Lip pain [Not Recovered/Not Resolved]
  - Pain in extremity [Recovered/Resolved]
  - Decreased appetite [Not Recovered/Not Resolved]
  - Ageusia [Not Recovered/Not Resolved]
  - Skin papilloma [Unknown]
  - Rash erythematous [Not Recovered/Not Resolved]
  - Alopecia [Unknown]
  - Oropharyngeal pain [Not Recovered/Not Resolved]
  - Metamorphopsia [Not Recovered/Not Resolved]
  - Gingival swelling [Not Recovered/Not Resolved]
  - Stomatitis [Not Recovered/Not Resolved]
  - Insomnia [Unknown]
  - Rash pustular [Not Recovered/Not Resolved]
  - Bone pain [Recovering/Resolving]
  - Lip swelling [Not Recovered/Not Resolved]
  - Stoma site pain [Not Recovered/Not Resolved]
  - Rash papular [Not Recovered/Not Resolved]
  - Myalgia [Recovering/Resolving]
  - Post procedural haemorrhage [Not Recovered/Not Resolved]
  - Swollen tongue [Not Recovered/Not Resolved]
  - Eye disorder [Unknown]
  - Post procedural complication [Not Recovered/Not Resolved]
  - Scar [Not Recovered/Not Resolved]
  - Pruritus generalised [Not Recovered/Not Resolved]
  - Respiratory tract congestion [Unknown]
  - Exfoliative rash [Not Recovered/Not Resolved]
  - Lip pain [Unknown]
  - Skin exfoliation [Unknown]
  - Mouth swelling [Not Recovered/Not Resolved]
  - Oral discomfort [Unknown]
  - Eye infection [Recovering/Resolving]

NARRATIVE: CASE EVENT DATE: 201707
